FAERS Safety Report 5702530-9 (Version None)
Quarter: 2008Q2

REPORT INFORMATION
  Report Type: 
  Country: None (occurrence: None)
  Receive Date: 20080411
  Receipt Date: 20070823
  Transmission Date: 20081010
  Serious: No
  Sender: FDA-Public Use
  Company Number: US-ASTRAZENECA-2007UW20202

PATIENT
  Age: 66 Year
  Sex: Female
  Weight: 84.4 kg

DRUGS (2)
  1. TENORMIN [Suspect]
     Route: 048
  2. HYZAAR [Concomitant]

REACTIONS (1)
  - CHEST DISCOMFORT [None]
